FAERS Safety Report 8380633-0 (Version None)
Quarter: 2012Q2

REPORT INFORMATION
  Report Type: 
  Country: None (occurrence: None)
  Receive Date: 20120511
  Receipt Date: 20120504
  Transmission Date: 20120825
  Serious: Yes (Other)
  Sender: FDA-Public Use
  Company Number: 2012032248

PATIENT
  Age: 68 Year
  Sex: Female
  Weight: 82.5547 kg

DRUGS (21)
  1. LIDOCAINE [Concomitant]
  2. GABAPENTIN [Concomitant]
  3. ASPIRIN [Concomitant]
  4. PREDNISONE TAB [Concomitant]
  5. LIPITOR [Concomitant]
  6. CENTRUM SILVER (CENTRUM SILVER) [Concomitant]
  7. HIZENTRA [Suspect]
     Indication: IMMUNODEFICIENCY COMMON VARIABLE
     Dosage: (SUBCUTANEOUS) ; (10 G 1X/WEEK, (50 ML) 1-4 SITES OVER 1-2 HOURS SUBCUTANEOUS) ; (SUBCUTANEOUS)
     Route: 058
     Dates: start: 20110601
  8. FOSAMAX [Concomitant]
  9. FUROSEMIDE [Concomitant]
  10. AZITHROMYCIN [Concomitant]
  11. MAGNESIUM (MAGNESIUM) [Concomitant]
  12. SPIRONOLACTONE [Concomitant]
  13. METOPROLOL TARTRATE [Concomitant]
  14. BACTRIM [Concomitant]
  15. HIZENTRA [Suspect]
  16. ACETAMINOPHEN [Concomitant]
  17. LEVOTHYROXINE SODIUM [Concomitant]
  18. TRAMADOL HCL [Concomitant]
  19. GLIPIZIDE [Concomitant]
  20. DIPHENHYDRAMINE HCL [Concomitant]
  21. ALLOPURINOL [Concomitant]

REACTIONS (1)
  - CARDIAC FAILURE [None]
